FAERS Safety Report 11883708 (Version 1)
Quarter: 2016Q1

REPORT INFORMATION
  Report Type: Spontaneous
  Country: US (occurrence: US)
  Receive Date: 20160101
  Receipt Date: 20160101
  Transmission Date: 20160526
  Serious: No
  Sender: FDA-Public Use
  Company Number: US-ASTRAZENECA-2015SF30548

PATIENT
  Sex: Female

DRUGS (1)
  1. BYETTA [Suspect]
     Active Substance: EXENATIDE
     Route: 058

REACTIONS (5)
  - Crying [Unknown]
  - Underdose [Unknown]
  - Product quality issue [Unknown]
  - Intentional device misuse [Unknown]
  - Drug dose omission [Unknown]
